FAERS Safety Report 10098537 (Version 1)
Quarter: 2014Q2

REPORT INFORMATION
  Report Type: Spontaneous
  Country: US (occurrence: None)
  Receive Date: 20140422
  Receipt Date: 20140422
  Transmission Date: 20141212
  Serious: Yes (Hospitalization, Disabling)
  Sender: FDA-Public Use
  Company Number: None

PATIENT
  Age: 9 Year
  Sex: Male
  Weight: 52.16 kg

DRUGS (6)
  1. CYCLOBENZAPRINE [Suspect]
     Indication: MUSCLE SPASMS
     Route: 048
     Dates: start: 20130311, end: 20140313
  2. CYCLOBENZAPRINE [Suspect]
     Indication: BACK PAIN
     Route: 048
     Dates: start: 20130311, end: 20140313
  3. TORADOL [Concomitant]
  4. CYCLOBENZAPRINE [Concomitant]
  5. NAPROSYN ER [Concomitant]
  6. CHILDRENS ADVIL [Concomitant]

REACTIONS (1)
  - Movement disorder [None]
